FAERS Safety Report 9330848 (Version 1)
Quarter: 2013Q2

REPORT INFORMATION
  Report Type: Spontaneous
  Country: US (occurrence: None)
  Receive Date: 20130604
  Receipt Date: 20130604
  Transmission Date: 20140414
  Serious: Yes (Life-Threatening, Other)
  Sender: FDA-Public Use
  Company Number: None

PATIENT
  Age: 49 Year
  Sex: Male
  Weight: 71.67 kg

DRUGS (3)
  1. OPANA ER [Suspect]
     Indication: COMPLEX REGIONAL PAIN SYNDROME
     Dosage: 1-2, 6-8 HRS
     Dates: start: 20130501
  2. OPANA ER [Suspect]
     Indication: BLOOD PRESSURE INADEQUATELY CONTROLLED
     Dosage: 1-2, 6-8 HRS
     Dates: start: 20130501
  3. OPANA ER [Suspect]
     Indication: MIGRAINE
     Dosage: 1-2, 6-8 HRS
     Dates: start: 20130501

REACTIONS (2)
  - Vomiting [None]
  - Product substitution issue [None]
